FAERS Safety Report 21646955 (Version 1)
Quarter: 2022Q4

REPORT INFORMATION
  Report Type: Report from Study
  Country: CA (occurrence: CA)
  Receive Date: 20221127
  Receipt Date: 20221127
  Transmission Date: 20230113
  Serious: Yes (Hospitalization, Other)
  Sender: FDA-Public Use
  Company Number: CA-TEVA-2022-CA-2820437

PATIENT
  Age: 78 Year
  Sex: Male

DRUGS (3)
  1. OCTREOTIDE [Suspect]
     Active Substance: OCTREOTIDE
     Indication: Carcinoid tumour
     Route: 030
     Dates: start: 20220506
  2. OCTREOTIDE [Suspect]
     Active Substance: OCTREOTIDE
     Route: 030
     Dates: start: 20220506
  3. SANDO LAR [Concomitant]
     Indication: Product used for unknown indication

REACTIONS (7)
  - Loss of consciousness [Recovered/Resolved]
  - Haemoglobin decreased [Unknown]
  - Musculoskeletal chest pain [Unknown]
  - Weight decreased [Not Recovered/Not Resolved]
  - Fall [Unknown]
  - Skin laceration [Unknown]
  - Blood pressure increased [Unknown]

NARRATIVE: CASE EVENT DATE: 20220101
